FAERS Safety Report 8088538-X (Version None)
Quarter: 2012Q1

REPORT INFORMATION
  Report Type: 
  Country: None (occurrence: None)
  Receive Date: 20120128
  Receipt Date: 20110407
  Transmission Date: 20120608
  Serious: No
  Sender: FDA-Public Use
  Company Number: US-ABBOTT-11P-163-0717401-00

PATIENT
  Sex: Male

DRUGS (5)
  1. LORATADINE [Concomitant]
     Indication: PRURITUS
  2. PREDNISONE TAB [Concomitant]
     Indication: PRODUCT USED FOR UNKNOWN INDICATION
     Dosage: TAPER
     Route: 048
  3. LORATADINE [Concomitant]
     Indication: PSORIASIS
     Route: 048
  4. PSORIATANE [Concomitant]
     Indication: PSORIASIS
     Route: 048
  5. HUMIRA [Suspect]
     Indication: PSORIASIS
     Route: 058
     Dates: start: 20110124, end: 20110406

REACTIONS (1)
  - SWELLING FACE [None]
